FAERS Safety Report 6603660-X (Version None)
Quarter: 2010Q1

REPORT INFORMATION
  Report Type: 
  Country: None (occurrence: None)
  Receive Date: 20100226
  Receipt Date: 20100219
  Transmission Date: 20100710
  Serious: Yes (Hospitalization, Other)
  Sender: FDA-Public Use
  Company Number: US-B.I. PHARMACEUTICALS,INC./RIDGEFIELD-2009-BP-03805BP

PATIENT
  Age: 57 Year
  Sex: Female

DRUGS (6)
  1. FLOMAX [Suspect]
     Indication: URINARY RETENTION
     Dosage: 0.4 MG
     Route: 048
     Dates: start: 20060501, end: 20060501
  2. FLOMAX [Suspect]
     Indication: BLOOD URINE PRESENT
  3. TOPROL-XL [Concomitant]
     Indication: CARDIAC DISORDER
  4. ANXIETY MEDICATION [Concomitant]
     Indication: ANXIETY
  5. BLOOD PRESSURE MEDICINE [Concomitant]
     Indication: BLOOD PRESSURE
  6. VITAMIN D [Concomitant]

REACTIONS (15)
  - COLONIC POLYP [None]
  - DIVERTICULITIS [None]
  - DIZZINESS [None]
  - FALL [None]
  - FLUID RETENTION [None]
  - GASTROINTESTINAL DISORDER [None]
  - HEART RATE DECREASED [None]
  - HYPERTENSION [None]
  - HYPOTENSION [None]
  - JOINT INJURY [None]
  - LOSS OF CONSCIOUSNESS [None]
  - MENISCUS LESION [None]
  - PULSE ABSENT [None]
  - SYNCOPE [None]
  - URINARY RETENTION [None]
